FAERS Safety Report 5030283-9 (Version None)
Quarter: 2006Q2

REPORT INFORMATION
  Report Type: 
  Country: None (occurrence: None)
  Receive Date: 20060620
  Receipt Date: 20060607
  Transmission Date: 20061013
  Serious: Yes (Hospitalization, Other)
  Sender: FDA-Public Use
  Company Number: JP-AVENTIS-200611795JP

PATIENT
  Age: 72 Year
  Sex: Male

DRUGS (7)
  1. GLIMEPIRIDE [Suspect]
     Indication: DIABETES MELLITUS NON-INSULIN-DEPENDENT
     Route: 048
  2. CANDESARTAN CILEXETIL [Concomitant]
  3. AMLODIPINE BESYLATE [Concomitant]
  4. ASPIRIN [Concomitant]
  5. LOXOPROFEN SODIUM [Concomitant]
  6. EPERISONE HYDROCHLORIDE [Concomitant]
  7. OMEPRAZOLE [Concomitant]

REACTIONS (6)
  - ANOREXIA [None]
  - DEPRESSED LEVEL OF CONSCIOUSNESS [None]
  - FALL [None]
  - HYPOGLYCAEMIA [None]
  - RESTLESSNESS [None]
  - SELF-MEDICATION [None]
